FAERS Safety Report 12202475 (Version 5)
Quarter: 2016Q3

REPORT INFORMATION
  Report Type: Other
  Country: GB (occurrence: GB)
  Receive Date: 20160322
  Receipt Date: 20160712
  Transmission Date: 20161109
  Serious: Yes (Hospitalization, Other)
  Sender: FDA-Public Use
  Company Number: GB-PFM-GB-2015-5098

PATIENT
  Age: 53 Year
  Sex: Female

DRUGS (8)
  1. CHLORHEXIDINE [Suspect]
     Active Substance: CHLORHEXIDINE
     Indication: PRODUCT USED FOR UNKNOWN INDICATION
     Dosage: UNK
     Route: 065
  2. NEULASTA [Concomitant]
     Active Substance: PEGFILGRASTIM
     Indication: PRODUCT USED FOR UNKNOWN INDICATION
     Route: 065
  3. DEXAMETHASONE. [Concomitant]
     Active Substance: DEXAMETHASONE
     Indication: PRODUCT USED FOR UNKNOWN INDICATION
     Route: 065
  4. HERCEPTIN [Suspect]
     Active Substance: TRASTUZUMAB
     Indication: PRODUCT USED FOR UNKNOWN INDICATION
     Dosage: 600 MG, UNK
     Route: 058
     Dates: start: 2012
  5. GRANISETRON [Concomitant]
     Active Substance: GRANISETRON
     Indication: PRODUCT USED FOR UNKNOWN INDICATION
     Route: 065
  6. VINORELBINE INN [Suspect]
     Active Substance: VINORELBINE TARTRATE
     Indication: PRODUCT USED FOR UNKNOWN INDICATION
     Dosage: UNK MG, UNK
     Route: 048
  7. CARBOPLATIN. [Suspect]
     Active Substance: CARBOPLATIN
     Indication: PRODUCT USED FOR UNKNOWN INDICATION
     Route: 065
  8. GEMCITABINE [Suspect]
     Active Substance: GEMCITABINE\GEMCITABINE HYDROCHLORIDE
     Indication: PRODUCT USED FOR UNKNOWN INDICATION
     Route: 065

REACTIONS (30)
  - Drug hypersensitivity [Unknown]
  - Neuralgia [Unknown]
  - Musculoskeletal disorder [Unknown]
  - Dysgeusia [Unknown]
  - Paraesthesia [Unknown]
  - Sensory loss [Unknown]
  - Wound secretion [Unknown]
  - Neuropathy peripheral [Unknown]
  - Blood creatinine increased [Unknown]
  - Allergy to chemicals [Unknown]
  - Dyspnoea exertional [Unknown]
  - Oedema [Unknown]
  - Rhinorrhoea [Unknown]
  - Metastases to skin [Unknown]
  - Pyrexia [Unknown]
  - Cough [Unknown]
  - Hypoaesthesia [Unknown]
  - Limb discomfort [Unknown]
  - Constipation [Unknown]
  - Diarrhoea [Recovering/Resolving]
  - Nausea [Unknown]
  - Fatigue [Recovered/Resolved]
  - Lymphoedema [Unknown]
  - Wound haemorrhage [Unknown]
  - Wound [Unknown]
  - Movement disorder [Unknown]
  - Dysphonia [Unknown]
  - Anaemia [Not Recovered/Not Resolved]
  - Vomiting [Unknown]
  - Pain in extremity [Recovering/Resolving]

NARRATIVE: CASE EVENT DATE: 20160509
